FAERS Safety Report 6317783-6 (Version None)
Quarter: 2009Q3

REPORT INFORMATION
  Report Type: 
  Country: None (occurrence: None)
  Receive Date: 20090821
  Receipt Date: 20090819
  Transmission Date: 20100115
  Serious: Yes (Death)
  Sender: FDA-Public Use
  Company Number: US-ROXANE LABORATORIES, INC.-2009-RO-00851RO

PATIENT
  Sex: Female

DRUGS (4)
  1. PREDNISONE [Suspect]
  2. CYTOXAN [Concomitant]
  3. CYCLOSPORINE [Concomitant]
  4. IMMUNE GLOBULIN INTRAVENOUS (HUMAN) [Concomitant]
     Route: 042

REACTIONS (2)
  - DEATH [None]
  - DRUG INEFFECTIVE [None]
